FAERS Safety Report 15942783 (Version 2)
Quarter: 2019Q1

REPORT INFORMATION
  Report Type: Spontaneous
  Country: PL (occurrence: PL)
  Receive Date: 20190210
  Receipt Date: 20190214
  Transmission Date: 20190417
  Serious: Yes (Death, Life-Threatening, Hospitalization, Other)
  Sender: FDA-Public Use
  Company Number: PHHY2019PL029318

PATIENT
  Age: 88 Year
  Sex: Female

DRUGS (4)
  1. CIPROFLOXACIN. [Concomitant]
     Active Substance: CIPROFLOXACIN
     Dosage: 750 MG,BID
     Route: 042
     Dates: start: 20150407, end: 20150413
  2. AMOXICILLIN. [Suspect]
     Active Substance: AMOXICILLIN
     Indication: CLOSTRIDIAL INFECTION
     Dosage: 2.4 G, TID
     Route: 042
     Dates: start: 20150417
  3. CLINDAMYCIN. [Suspect]
     Active Substance: CLINDAMYCIN
     Indication: CLOSTRIDIAL INFECTION
     Dosage: 600 MG, TID
     Route: 042
     Dates: start: 20150417
  4. CEFAZOLIN [Concomitant]
     Active Substance: CEFAZOLIN
     Indication: PROPHYLAXIS
     Dosage: 2 G,UNK
     Route: 042

REACTIONS (5)
  - Clostridial infection [Fatal]
  - Circulatory collapse [Fatal]
  - Multiple organ dysfunction syndrome [Fatal]
  - Drug ineffective [Fatal]
  - Condition aggravated [Fatal]

NARRATIVE: CASE EVENT DATE: 20150419
